FAERS Safety Report 22045721 (Version 1)
Quarter: 2023Q1

REPORT INFORMATION
  Report Type: Spontaneous
  Country: US (occurrence: US)
  Receive Date: 20230228
  Receipt Date: 20230228
  Transmission Date: 20230418
  Serious: No
  Sender: FDA-Public Use
  Company Number: US-CLARUS THERAPEUTICS, INC.-2023-JATENZO-000090

PATIENT

DRUGS (2)
  1. JATENZO [Suspect]
     Active Substance: TESTOSTERONE UNDECANOATE
     Indication: Hypogonadism
     Dosage: 237 MILLIGRAM, BID
     Route: 048
     Dates: start: 20230213
  2. JATENZO [Suspect]
     Active Substance: TESTOSTERONE UNDECANOATE
     Indication: Blood testosterone decreased

REACTIONS (2)
  - Dysgeusia [Not Recovered/Not Resolved]
  - Eructation [Not Recovered/Not Resolved]

NARRATIVE: CASE EVENT DATE: 20230213
